FAERS Safety Report 9110376 (Version 1)
Quarter: 2013Q1

REPORT INFORMATION
  Report Type: Spontaneous
  Country: US (occurrence: US)
  Receive Date: 20130219
  Receipt Date: 20130219
  Transmission Date: 20140127
  Serious: No
  Sender: FDA-Public Use
  Company Number: US-BRISTOL-MYERS SQUIBB COMPANY-16577850

PATIENT
  Age: 72 Year
  Sex: Female
  Weight: 57.59 kg

DRUGS (2)
  1. ORENCIA [Suspect]
     Indication: RHEUMATOID ARTHRITIS
     Dosage: LAST DOSE WAS ON  27APR2012
     Route: 042
  2. MOBIC [Concomitant]
     Indication: ARTHRITIS

REACTIONS (2)
  - Inguinal mass [Unknown]
  - Pain [Unknown]
